FAERS Safety Report 7118080-1 (Version None)
Quarter: 2010Q4

REPORT INFORMATION
  Report Type: 
  Country: None (occurrence: None)
  Receive Date: 20101123
  Receipt Date: 20100603
  Transmission Date: 20110411
  Serious: Yes (Other)
  Sender: FDA-Public Use
  Company Number: US-MYLANLABS-2010S1010074

PATIENT
  Sex: Female

DRUGS (1)
  1. ALLOPURINOL TAB [Suspect]
     Indication: GOUT
     Route: 048
     Dates: start: 20080512

REACTIONS (2)
  - STEVENS-JOHNSON SYNDROME [None]
  - TOXIC EPIDERMAL NECROLYSIS [None]
